FAERS Safety Report 14798466 (Version 3)
Quarter: 2018Q2

REPORT INFORMATION
  Report Type: Spontaneous
  Country: US (occurrence: US)
  Receive Date: 20180424
  Receipt Date: 20180604
  Transmission Date: 20180711
  Serious: No
  Sender: FDA-Public Use
  Company Number: US-PFIZER INC-2018166004

PATIENT
  Age: 76 Year
  Sex: Female
  Weight: 80 kg

DRUGS (2)
  1. IBRANCE [Suspect]
     Active Substance: PALBOCICLIB
     Dosage: 125 MG, CYCLIC, (DAY1-21 Q28 DAYS)
     Route: 048
     Dates: start: 20180414
  2. IBRANCE [Suspect]
     Active Substance: PALBOCICLIB
     Indication: BREAST CANCER METASTATIC
     Dosage: 125 MG, CYCLIC, (DAY1-21 Q28 DAYS)
     Route: 048
     Dates: start: 20180413

REACTIONS (7)
  - Ear discomfort [Unknown]
  - Chills [Unknown]
  - Dyskinesia [Unknown]
  - White blood cell count decreased [Unknown]
  - Memory impairment [Unknown]
  - Asthenia [Unknown]
  - Feeling abnormal [Unknown]

NARRATIVE: CASE EVENT DATE: 2018
